FAERS Safety Report 9115364 (Version 2)
Quarter: 2013Q1

REPORT INFORMATION
  Report Type: Spontaneous
  Country: US (occurrence: None)
  Receive Date: 20130128
  Receipt Date: 20130206
  Transmission Date: 20140127
  Serious: Yes (Hospitalization)
  Sender: FDA-Public Use
  Company Number: JPI-P-029129

PATIENT
  Age: 58 Year
  Sex: Female

DRUGS (1)
  1. XYREM(500 MILLIGRAM/MILLILITERS, SOLUTION)(SODIUM OXYBATE) [Suspect]
     Indication: CATAPLEXY
     Dosage: 6 GM (3 GM, 2 IN 1 D)
     Route: 048
     Dates: start: 20080512

REACTIONS (9)
  - Gallbladder operation [None]
  - Blood pressure decreased [None]
  - Sepsis [None]
  - Inflammation [None]
  - Liver disorder [None]
  - Gastrointestinal disorder [None]
  - Cerebral disorder [None]
  - Sleep disorder [None]
  - Post procedural complication [None]
